FAERS Safety Report 8585827-7 (Version None)
Quarter: 2012Q3

REPORT INFORMATION
  Report Type: 
  Country: None (occurrence: None)
  Receive Date: 20120810
  Receipt Date: 20120731
  Transmission Date: 20120928
  Serious: Yes (Hospitalization)
  Sender: FDA-Public Use
  Company Number: US-BAYER-2012-045912

PATIENT
  Age: 52 Year
  Sex: Female

DRUGS (8)
  1. ASPIRIN W/BUTALBITAL/CAFFEINE/CODEINE PHOSPH. [Concomitant]
     Indication: HEADACHE
     Dosage: 30 MG, DAILY
  2. YAZ [Suspect]
     Dosage: UNK
  3. LEVOTHROID [Concomitant]
     Dosage: 100 MCG, UNK
  4. SYNTHROID [Concomitant]
     Indication: PULMONARY EMBOLISM
  5. IMITREX [Concomitant]
     Indication: MIGRAINE
     Dosage: 20 MG, USE 1 SPRAY, MAY REPEAT IN 2 HOURS, MAXIMUM 2 SPRAYS Q (INTERPRETED AS EVERY) 24 HOURS
     Route: 045
  6. ALBUTEROL [Concomitant]
     Dosage: UNK
  7. YASMIN [Suspect]
     Dosage: UNK
  8. SYNTHROID [Concomitant]
     Indication: DEEP VEIN THROMBOSIS
     Dosage: 100 MCG A DAY

REACTIONS (9)
  - QUALITY OF LIFE DECREASED [None]
  - EMOTIONAL DISTRESS [None]
  - DEEP VEIN THROMBOSIS [None]
  - ANHEDONIA [None]
  - FEAR [None]
  - PAIN [None]
  - ANXIETY [None]
  - PULMONARY EMBOLISM [None]
  - INJURY [None]
